FAERS Safety Report 16912289 (Version 3)
Quarter: 2020Q3

REPORT INFORMATION
  Report Type: Report from Study
  Country: US (occurrence: US)
  Receive Date: 20191014
  Receipt Date: 20200817
  Transmission Date: 20201102
  Serious: Yes (Hospitalization, Other)
  Sender: FDA-Public Use
  Company Number: US-ROCHE-2430484

PATIENT
  Age: 71 Year
  Sex: Female
  Weight: 63.7 kg

DRUGS (3)
  1. ATEZOLIZUMAB. [Suspect]
     Active Substance: ATEZOLIZUMAB
     Indication: BREAST CANCER
     Dosage: DATE OF LAST DOSE ADMINISTERED ON 05/SEP/2018 (OVER 30?60 MINUTES ON DAY 1)
     Route: 041
     Dates: start: 20180815
  2. PACLITAXEL. [Suspect]
     Active Substance: PACLITAXEL
     Indication: BREAST CANCER
     Dosage: 80 MG/M2 IV OVER 60 MINUTES ON DAY 1, 8, 15??DATE OF LAST DOSE ADMINISTERED ON 12/SEP/2018
     Route: 042
     Dates: start: 20180815
  3. CARBOPLATIN. [Suspect]
     Active Substance: CARBOPLATIN
     Indication: BREAST CANCER
     Dosage: OVER 30 MINUTES ON DAY 1?DATE OF LAST DOSE ADMINISTERED ON 05/SEP/2018
     Route: 042
     Dates: start: 20180815

REACTIONS (4)
  - Neutrophil count decreased [Unknown]
  - Anorectal infection [Unknown]
  - Subcutaneous abscess [Unknown]
  - Glucose tolerance impaired [Unknown]

NARRATIVE: CASE EVENT DATE: 20180919
